FAERS Safety Report 5364793-1 (Version None)
Quarter: 2007Q2

REPORT INFORMATION
  Report Type: 
  Country: None (occurrence: None)
  Receive Date: 20070621
  Receipt Date: 20070618
  Transmission Date: 20071010
  Serious: Yes (Other)
  Sender: FDA-Public Use
  Company Number: PHNU2007DE00944

PATIENT
  Sex: Female

DRUGS (3)
  1. ZOMETA [Suspect]
     Indication: NEOPLASM PROPHYLAXIS
     Dosage: 4 MG, UNK
     Route: 042
  2. METOPROLOL SUCCINATE [Concomitant]
     Route: 065
  3. TAMOXIFEN CITRATE [Concomitant]
     Indication: BREAST CANCER
     Route: 065

REACTIONS (1)
  - OSTEONECROSIS [None]
